FAERS Safety Report 8530436-9 (Version None)
Quarter: 2012Q3

REPORT INFORMATION
  Report Type: 
  Country: None (occurrence: None)
  Receive Date: 20120723
  Receipt Date: 20120629
  Transmission Date: 20120928
  Serious: Yes (Hospitalization)
  Sender: FDA-Public Use
  Company Number: DE-SANOFI-AVENTIS-2009SA008272

PATIENT
  Age: 65 Year
  Sex: Female

DRUGS (9)
  1. SIMVASTATIN [Concomitant]
     Dosage: 20 (NOS)
     Dates: start: 20071201
  2. CHOLSPASMIN [Concomitant]
     Dosage: 400 (NOS)
     Dates: start: 20020701
  3. RAMIPRIL [Concomitant]
     Dosage: 2.5 (NOS)
     Dates: start: 20070401
  4. OPTIPEN [Suspect]
  5. ACETYLSALICYLIC ACID SRT [Concomitant]
     Indication: PROPHYLAXIS
  6. OMEGA-3 POLYUNSATURATED FATTY ACID [Suspect]
     Dates: start: 20050823, end: 20080114
  7. LEVOTHYROXINE SODIUM [Concomitant]
     Indication: THYROID DISORDER
     Dosage: 125 (NOS)
     Dates: start: 20090401
  8. METOPROLOL SUCCINATE [Concomitant]
     Indication: HYPERTENSION
     Dosage: 50(NOS)
     Dates: start: 20080401
  9. LANTUS [Suspect]
     Route: 058
     Dates: start: 20050803

REACTIONS (1)
  - BASAL CELL CARCINOMA [None]
